FAERS Safety Report 9850541 (Version 1)
Quarter: 2014Q1

REPORT INFORMATION
  Report Type: Spontaneous
  Country: GB (occurrence: GB)
  Receive Date: 20140128
  Receipt Date: 20140128
  Transmission Date: 20141002
  Serious: Yes (Hospitalization)
  Sender: FDA-Public Use
  Company Number: GB-BAUSCH-BL-2014-000383

PATIENT
  Age: 65 Year
  Sex: Female
  Weight: 60 kg

DRUGS (12)
  1. DEXAMETHASONE [Suspect]
     Indication: PLASMA CELL MYELOMA
     Route: 048
     Dates: start: 20130319, end: 20130407
  2. DOXORUBICIN LIPOSOMAL [Suspect]
     Indication: PLASMA CELL MYELOMA
     Dates: start: 20130319
  3. VELCADE [Suspect]
     Indication: PLASMA CELL MYELOMA
     Route: 058
     Dates: start: 20130319, end: 20130506
  4. ACICLOVIR [Concomitant]
     Indication: PROPHYLAXIS
     Route: 048
  5. ALLOPURINOL [Concomitant]
     Indication: PROPHYLAXIS
     Route: 048
  6. BACTRIM [Concomitant]
     Indication: PROPHYLAXIS
     Route: 048
  7. CITALOPRAM [Concomitant]
     Indication: DEPRESSION
     Route: 048
  8. DIAZEPAM [Concomitant]
     Indication: DEPRESSION
     Route: 048
  9. FLUCONAZOLE [Concomitant]
     Indication: PROPHYLAXIS
     Route: 048
  10. LANSOPRAZOLE [Concomitant]
     Indication: ANTACID THERAPY
     Route: 048
  11. MAXOLON [Concomitant]
     Indication: PROPHYLAXIS OF NAUSEA AND VOMITING
     Route: 048
  12. VENTOLIN [Concomitant]
     Indication: CHRONIC OBSTRUCTIVE PULMONARY DISEASE

REACTIONS (4)
  - Pneumonia [Recovered/Resolved]
  - Productive cough [Recovered/Resolved]
  - Dyspnoea [Recovered/Resolved]
  - Pyrexia [Recovered/Resolved]
